FAERS Safety Report 19297432 (Version 2)
Quarter: 2021Q3

REPORT INFORMATION
  Report Type: Spontaneous
  Country: JP (occurrence: JP)
  Receive Date: 20210524
  Receipt Date: 20210823
  Transmission Date: 20211014
  Serious: Yes (Hospitalization)
  Sender: FDA-Public Use
  Company Number: NVSJ2021JP007639

PATIENT
  Age: 91 Year
  Sex: Male

DRUGS (2)
  1. L CARTIN FF [Suspect]
     Active Substance: LEVOCARNITINE
     Indication: CARNITINE DECREASED
     Dosage: 1000 MG
     Route: 041
     Dates: start: 20210501, end: 20210507
  2. ENTRESTO [Suspect]
     Active Substance: SACUBITRIL\VALSARTAN
     Indication: HYPERTENSION
     Dosage: 200 MG
     Route: 048
     Dates: start: 20210501, end: 20210508

REACTIONS (7)
  - Chest discomfort [Recovered/Resolved]
  - Dizziness [Recovered/Resolved]
  - Dyspnoea [Recovering/Resolving]
  - Dyspnoea [Recovered/Resolved]
  - Chest discomfort [Recovering/Resolving]
  - Cerebral haemorrhage [Recovering/Resolving]
  - Dizziness [Unknown]

NARRATIVE: CASE EVENT DATE: 20210501
